FAERS Safety Report 12899710 (Version 4)
Quarter: 2018Q1

REPORT INFORMATION
  Report Type: Spontaneous
  Country: US (occurrence: US)
  Receive Date: 20161101
  Receipt Date: 20180206
  Transmission Date: 20180508
  Serious: No
  Sender: FDA-Public Use
  Company Number: US-PFIZER INC-2016503700

PATIENT
  Age: 61 Year
  Sex: Female
  Weight: 146 kg

DRUGS (2)
  1. LETROZOLE. [Suspect]
     Active Substance: LETROZOLE
     Indication: PROPHYLAXIS
     Dosage: 2.5 MG, 1X/DAY
     Route: 048
     Dates: start: 201608
  2. IBRANCE [Suspect]
     Active Substance: PALBOCICLIB
     Indication: BREAST CANCER FEMALE
     Dosage: 75 MG, CYCLIC ( QD DAYS 1-21 OF 28 DAY CYCLE)
     Route: 048
     Dates: start: 201608

REACTIONS (3)
  - Malaise [Recovering/Resolving]
  - Immune system disorder [Unknown]
  - Nausea [Recovering/Resolving]

NARRATIVE: CASE EVENT DATE: 201609
